FAERS Safety Report 7480372-4 (Version None)
Quarter: 2011Q2

REPORT INFORMATION
  Report Type: 
  Country: None (occurrence: None)
  Receive Date: 20110504
  Receipt Date: 20110419
  Transmission Date: 20111010
  Serious: No
  Sender: FDA-Public Use
  Company Number: SPI201100090

PATIENT
  Age: 42 Year
  Sex: Female
  Weight: 62.6 kg

DRUGS (3)
  1. AMITIZA [Suspect]
     Indication: CONSTIPATION
     Dosage: 24 MCG, BID, ORAL, 24 MCG,QD, ORAL
     Route: 048
     Dates: start: 20110322, end: 20110405
  2. AMITIZA [Suspect]
     Indication: CONSTIPATION
     Dosage: 24 MCG, BID, ORAL, 24 MCG,QD, ORAL
     Route: 048
     Dates: end: 20110405
  3. KEPPRA [Concomitant]

REACTIONS (2)
  - CHEST DISCOMFORT [None]
  - CHEST PAIN [None]
